FAERS Safety Report 11083515 (Version 3)
Quarter: 2015Q2

REPORT INFORMATION
  Report Type: Spontaneous
  Country: US (occurrence: US)
  Receive Date: 20150501
  Receipt Date: 20150626
  Transmission Date: 20150821
  Serious: No
  Sender: FDA-Public Use
  Company Number: US-PFIZER INC-2015147924

PATIENT
  Age: 81 Year
  Sex: Female
  Weight: 56 kg

DRUGS (4)
  1. CELEBREX [Suspect]
     Active Substance: CELECOXIB
     Indication: DISCOMFORT
  2. ASPIRIN. [Suspect]
     Active Substance: ASPIRIN
     Indication: HYPERTENSION
     Dosage: 81 MG
  3. VITAMIN B12 [Concomitant]
     Active Substance: CYANOCOBALAMIN
     Dosage: UNK
  4. CELEBREX [Suspect]
     Active Substance: CELECOXIB
     Indication: ARTHRITIS
     Dosage: 100 MG

REACTIONS (5)
  - Intentional product misuse [Unknown]
  - Memory impairment [Unknown]
  - Fatigue [Unknown]
  - Expired product administered [Unknown]
  - Peripheral swelling [Unknown]
